FAERS Safety Report 9339566 (Version 2)
Quarter: 2014Q1

REPORT INFORMATION
  Report Type: Spontaneous
  Country: US (occurrence: US)
  Receive Date: 20130610
  Receipt Date: 20140304
  Transmission Date: 20141002
  Serious: Yes (Hospitalization)
  Sender: FDA-Public Use
  Company Number: US-BIOGENIDEC-2013BI051386

PATIENT
  Age: 49 Year
  Sex: Female

DRUGS (14)
  1. TECFIDERA [Suspect]
     Indication: PRODUCT USED FOR UNKNOWN INDICATION
     Route: 048
     Dates: start: 20130522
  2. KEPPRA [Concomitant]
  3. ZONEGRAN [Concomitant]
  4. BIOTIN [Concomitant]
  5. KLONOPIN [Concomitant]
  6. LORTAB [Concomitant]
  7. MAGNESIUM [Concomitant]
  8. MIRTAZAPINE [Concomitant]
  9. NEURONTIN [Concomitant]
  10. ROBAXIN [Concomitant]
  11. TRIMETHOPRIM [Concomitant]
  12. VITAMIN B-12 [Concomitant]
  13. VITAMIN D3 [Concomitant]
  14. METHOCARBAMOL [Concomitant]

REACTIONS (3)
  - Convulsion [Unknown]
  - Pelvic fracture [Unknown]
  - Fall [Recovered/Resolved]
